FAERS Safety Report 9298390 (Version 2)
Quarter: 2020Q3

REPORT INFORMATION
  Report Type: Spontaneous
  Country: FR (occurrence: FR)
  Receive Date: 20130520
  Receipt Date: 20130611
  Transmission Date: 20201104
  Serious: Yes (Hospitalization)
  Sender: FDA-Public Use
  Company Number: FR-PFIZER INC-2013151623

PATIENT
  Age: 84 Year
  Sex: Female

DRUGS (24)
  1. CELEBREX [Suspect]
     Active Substance: CELECOXIB
     Indication: PAIN
     Dosage: 200 MG, 2X/DAY
     Route: 048
     Dates: start: 20130227, end: 20130307
  2. VANCOMYCINE [Suspect]
     Active Substance: VANCOMYCIN
     Dosage: UNK
     Route: 065
     Dates: start: 20130305, end: 20130305
  3. BRICANYL [Concomitant]
     Active Substance: TERBUTALINE SULFATE
     Indication: PREMEDICATION
     Dosage: UNK
  4. SUFENTANIL [Suspect]
     Active Substance: SUFENTANIL
     Indication: ANAESTHESIA
     Dosage: UNK
     Route: 065
     Dates: start: 20130305, end: 20130305
  5. NEO?SYNEPHRINE [Suspect]
     Active Substance: PHENYLEPHRINE HYDROCHLORIDE
     Dosage: UNK
     Dates: start: 20130305, end: 20130305
  6. DROLEPTAN [Suspect]
     Active Substance: DROPERIDOL
     Indication: ANAESTHESIA
     Dosage: UNK
     Route: 065
     Dates: start: 20130305, end: 20130305
  7. APROVEL [Concomitant]
     Active Substance: IRBESARTAN
     Dosage: UNK
  8. OMEPRAZOLE. [Suspect]
     Active Substance: OMEPRAZOLE
     Indication: PRODUCT USED FOR UNKNOWN INDICATION
     Dosage: 20 MG DAILY
     Route: 048
     Dates: start: 20130227, end: 20130307
  9. SEVORANE [Suspect]
     Active Substance: SEVOFLURANE
     Indication: ANAESTHESIA
     Dosage: UNK
     Route: 065
     Dates: start: 20130305, end: 20130305
  10. MORPHINE [Suspect]
     Active Substance: MORPHINE
     Dosage: UNK
     Route: 065
     Dates: start: 20130305, end: 20130305
  11. PHENYLEPHRINE [Suspect]
     Active Substance: PHENYLEPHRINE HYDROCHLORIDE
  12. CELESTENE [BETAMETHASONE] [Suspect]
     Active Substance: BETAMETHASONE
     Indication: ANAESTHESIA
     Dosage: UNK
     Route: 065
     Dates: start: 20130305, end: 20130305
  13. CELESTENE [BETAMETHASONE] [Suspect]
     Active Substance: BETAMETHASONE
  14. EPHEDRINE. [Suspect]
     Active Substance: EPHEDRINE
     Dosage: UNK
     Dates: start: 20130305, end: 20130305
  15. CATAPRESSAN [Suspect]
     Active Substance: CLONIDINE
     Dosage: UNK
     Route: 065
     Dates: start: 20130305, end: 20130305
  16. ATROVENT [Concomitant]
     Active Substance: IPRATROPIUM BROMIDE
     Dosage: UNK
  17. PARACETAMOL [Suspect]
     Active Substance: ACETAMINOPHEN
     Indication: PAIN
     Dosage: 2G DAILY
     Route: 048
     Dates: start: 20130226, end: 20130307
  18. DIPRIVAN [Suspect]
     Active Substance: PROPOFOL
     Indication: ANAESTHESIA
     Dosage: UNK
     Route: 065
     Dates: start: 20130305, end: 20130305
  19. RANIPLEX [Suspect]
     Active Substance: RANITIDINE HYDROCHLORIDE
     Indication: PREMEDICATION
     Dosage: UNK
     Route: 048
     Dates: start: 20130305, end: 20130305
  20. PYOSTACINE [Concomitant]
     Active Substance: PRISTINAMYCIN
     Dosage: UNK
  21. KETAMINE [Suspect]
     Active Substance: KETAMINE
     Indication: ANAESTHESIA
     Dosage: UNK
     Route: 065
     Dates: start: 20130305, end: 20130305
  22. AUGMENTIN [Suspect]
     Active Substance: AMOXICILLIN\CLAVULANATE POTASSIUM
     Indication: PREMEDICATION
     Dosage: UNK
     Route: 065
     Dates: start: 201303, end: 20130307
  23. PARACETAMOL [Suspect]
     Active Substance: ACETAMINOPHEN
     Indication: PREMEDICATION
     Dosage: 3 G DAILY
     Route: 042
     Dates: start: 20130224, end: 20130225
  24. ACUPAN [Concomitant]
     Active Substance: NEFOPAM HYDROCHLORIDE
     Dosage: UNK
     Dates: start: 20130305

REACTIONS (2)
  - Cholestasis [Recovering/Resolving]
  - Hepatocellular injury [Recovering/Resolving]

NARRATIVE: CASE EVENT DATE: 20130306
